FAERS Safety Report 7007603-9 (Version None)
Quarter: 2010Q3

REPORT INFORMATION
  Report Type: 
  Country: None (occurrence: None)
  Receive Date: 20100917
  Receipt Date: 20100903
  Transmission Date: 20110219
  Serious: Yes (Death, Hospitalization)
  Sender: FDA-Public Use
  Company Number: B0674312A

PATIENT
  Age: 58 Year
  Sex: Male

DRUGS (2)
  1. ZANAMIVIR (FORMULATION UNKNOWN) (ZANAMIVIR) (GENERIC) [Suspect]
     Indication: H1N1 INFLUENZA
     Dosage: TWICE PER DAY
  2. OSELTAMIVIR PHOSPHATE [Suspect]
     Indication: H1N1 INFLUENZA
     Dosage: 75 MG TWICE PER DAY/ ORAL
     Route: 048

REACTIONS (9)
  - ACIDOSIS [None]
  - ASPERGILLUS TEST POSITIVE [None]
  - HAEMODYNAMIC INSTABILITY [None]
  - ILEUS PARALYTIC [None]
  - PATHOGEN RESISTANCE [None]
  - PNEUMONITIS [None]
  - RENAL FAILURE [None]
  - THROMBOCYTOPENIA [None]
  - VIRAL TEST POSITIVE [None]
